FAERS Safety Report 4364939-8 (Version None)
Quarter: 2004Q2

REPORT INFORMATION
  Report Type: 
  Country: None (occurrence: None)
  Receive Date: 20040521
  Receipt Date: 20040514
  Transmission Date: 20050107
  Serious: Yes (Life-Threatening)
  Sender: FDA-Public Use
  Company Number: 2004210105US

PATIENT
  Age: 14 Year
  Sex: Male

DRUGS (4)
  1. GENOTROPIN [Suspect]
     Indication: HYPOPITUITARISM
     Dosage: 19.2 MG, WEEKLY (6 INJ.)
     Dates: start: 19970414, end: 20021001
  2. GENOTROPIN [Suspect]
     Indication: HYPOPITUITARISM
     Dates: start: 20040201
  3. SYNTHROID [Concomitant]
  4. CORTEF [Concomitant]

REACTIONS (2)
  - NEOPLASM RECURRENCE [None]
  - OPTIC NERVE GLIOMA [None]
